FAERS Safety Report 6809408-8 (Version None)
Quarter: 2010Q2

REPORT INFORMATION
  Report Type: 
  Country: None (occurrence: None)
  Receive Date: 20100630
  Receipt Date: 20100618
  Transmission Date: 20101027
  Serious: Yes (Hospitalization)
  Sender: FDA-Public Use
  Company Number: FR-SANOFI-AVENTIS-2010SA031981

PATIENT
  Age: 54 Year
  Sex: Female

DRUGS (16)
  1. LOVENOX [Suspect]
     Indication: THROMBOSIS PROPHYLAXIS
     Route: 058
     Dates: start: 20100516, end: 20100517
  2. PROPOFOL [Suspect]
     Indication: ANAESTHESIA
     Route: 042
     Dates: start: 20100517, end: 20100517
  3. ATRACURIUM [Suspect]
     Indication: ANAESTHESIA
     Route: 042
     Dates: start: 20100517, end: 20100517
  4. ULTIVA [Suspect]
     Indication: ANAESTHESIA
     Route: 042
     Dates: start: 20100517, end: 20100517
  5. AMOXICILLIN [Suspect]
     Indication: INFECTION PROPHYLAXIS
     Route: 042
     Dates: start: 20100517, end: 20100517
  6. METRONIDAZOLE [Suspect]
     Indication: DRUG USE FOR UNKNOWN INDICATION
     Route: 042
     Dates: start: 20100517, end: 20100517
  7. NEURONTIN [Suspect]
     Indication: DRUG USE FOR UNKNOWN INDICATION
     Route: 042
     Dates: start: 20100516, end: 20100516
  8. NEURONTIN [Suspect]
     Route: 042
     Dates: start: 20100517, end: 20100517
  9. NORMACOL [Suspect]
     Indication: DRUG USE FOR UNKNOWN INDICATION
     Dosage: DOSE:1 UNIT(S)
     Route: 054
     Dates: start: 20100516, end: 20100516
  10. MORPHINE SULFATE [Suspect]
     Indication: PAIN
     Route: 042
     Dates: start: 20100517, end: 20100517
  11. POVIDONE IODINE [Suspect]
     Route: 003
     Dates: start: 20100517, end: 20100517
  12. NAROPIN [Suspect]
     Indication: DRUG USE FOR UNKNOWN INDICATION
     Route: 065
     Dates: start: 20100517, end: 20100517
  13. DROPERIDOL [Suspect]
     Indication: DRUG USE FOR UNKNOWN INDICATION
     Route: 042
     Dates: start: 20100517, end: 20100517
  14. KETAMINE HCL [Suspect]
     Indication: DRUG USE FOR UNKNOWN INDICATION
     Route: 042
     Dates: start: 20100517, end: 20100518
  15. ZOLPIDEM [Concomitant]
     Indication: SLEEP DISORDER
     Route: 048
  16. DOLIPRANE [Concomitant]
     Route: 065

REACTIONS (5)
  - HAEMATURIA [None]
  - LYMPHOPENIA [None]
  - OLIGURIA [None]
  - RENAL FAILURE ACUTE [None]
  - RENAL TUBULAR NECROSIS [None]
